FAERS Safety Report 18491695 (Version 1)
Quarter: 2020Q4

REPORT INFORMATION
  Report Type: Other
  Country: US (occurrence: IN)
  Receive Date: 20201111
  Receipt Date: 20201111
  Transmission Date: 20210114
  Serious: Yes (Life-Threatening, Hospitalization, Other)
  Sender: FDA-Public Use
  Company Number: IN-BRECKENRIDGE PHARMACEUTICAL, INC.-2095814

PATIENT
  Age: 28 Year
  Sex: Female

DRUGS (1)
  1. SUCCINYLCHOLINE [Suspect]
     Active Substance: SUCCINYLCHOLINE
     Indication: INTENTIONAL SELF-INJURY

REACTIONS (3)
  - Mental status changes [None]
  - Seizure [None]
  - Lactic acidosis [None]
